FAERS Safety Report 6156699-5 (Version None)
Quarter: 2009Q2

REPORT INFORMATION
  Report Type: 
  Country: None (occurrence: None)
  Receive Date: 20090416
  Receipt Date: 20090409
  Transmission Date: 20091009
  Serious: Yes (Other)
  Sender: FDA-Public Use
  Company Number: US-TYCO HEALTHCARE/MALLINCKRODT-T200900854

PATIENT
  Sex: Female

DRUGS (2)
  1. OPTIRAY 300 [Suspect]
     Indication: COMPUTERISED TOMOGRAM ABDOMEN
     Dosage: 100 ML (CC), SINGLE
     Route: 042
     Dates: start: 20090405, end: 20090405
  2. ANTIHYPERTENSIVES [Concomitant]
     Indication: HYPERTENSION

REACTIONS (4)
  - ABDOMINAL DISCOMFORT [None]
  - PARAESTHESIA [None]
  - PRURITUS [None]
  - RASH [None]
